FAERS Safety Report 5445088-4 (Version None)
Quarter: 2007Q3

REPORT INFORMATION
  Report Type: 
  Country: None (occurrence: None)
  Receive Date: 20070906
  Receipt Date: 20070828
  Transmission Date: 20080115
  Serious: Yes (Hospitalization, Other)
  Sender: FDA-Public Use
  Company Number: AU-PFIZER INC-2007067289

PATIENT
  Age: 70 Year
  Sex: Female

DRUGS (2)
  1. NORVASC [Suspect]
  2. ATACAND HCT [Concomitant]

REACTIONS (5)
  - CONSTIPATION [None]
  - DEHYDRATION [None]
  - RASH GENERALISED [None]
  - RENAL FAILURE ACUTE [None]
  - VIRAL INFECTION [None]
